FAERS Safety Report 21599383 (Version 3)
Quarter: 2023Q1

REPORT INFORMATION
  Report Type: Spontaneous
  Country: JP (occurrence: JP)
  Receive Date: 20221115
  Receipt Date: 20230222
  Transmission Date: 20230418
  Serious: Yes (Hospitalization)
  Sender: FDA-Public Use
  Company Number: JP-BAYER-2022A156104

PATIENT
  Age: 74 Year
  Sex: Male
  Weight: 59.8 kg

DRUGS (20)
  1. VERICIGUAT HYDROCHLORIDE [Suspect]
     Active Substance: VERICIGUAT HYDROCHLORIDE
     Dosage: DAILY DOSE 2.5 MG
     Dates: start: 20221007, end: 20221007
  2. BELSOMRA [Concomitant]
     Active Substance: SUVOREXANT
     Dosage: UNK
     Dates: start: 20221006
  3. NIFEDIPINE [Concomitant]
     Active Substance: NIFEDIPINE
     Dosage: 40, 1T
  4. CLOPIDOGREL [Concomitant]
     Active Substance: CLOPIDOGREL BISULFATE
     Dosage: 75, 1T
  5. ATORVASTATIN [Concomitant]
     Active Substance: ATORVASTATIN
  6. DONEPEZIL HYDROCHLORIDE [Concomitant]
     Active Substance: DONEPEZIL HYDROCHLORIDE
     Dosage: 5, 1 T
  7. MAGNESIUM OXIDE [Concomitant]
     Active Substance: MAGNESIUM OXIDE
  8. BROTIZOLAM [Concomitant]
     Active Substance: BROTIZOLAM
     Dosage: 0.25, 1T
  9. METHYLCOBALAMIN [Concomitant]
     Active Substance: METHYLCOBALAMIN
     Dosage: 500, 3T
  10. PANTETHINE [Concomitant]
     Active Substance: PANTETHINE
     Dosage: 200, 3T
  11. PRASUGREL HYDROCHLORIDE [Concomitant]
     Active Substance: PRASUGREL HYDROCHLORIDE
  12. ELOBIXIBAT [Concomitant]
     Active Substance: ELOBIXIBAT
  13. BISOPROLOL [Concomitant]
     Active Substance: BISOPROLOL
  14. LANSOPRAZOLE [Concomitant]
     Active Substance: LANSOPRAZOLE
  15. AMIODARONE HYDROCHLORIDE [Concomitant]
     Active Substance: AMIODARONE HYDROCHLORIDE
  16. ROZEREM [Concomitant]
     Active Substance: RAMELTEON
     Dosage: UNK
     Dates: start: 20221006
  17. RIVAROXABAN [Concomitant]
     Active Substance: RIVAROXABAN
     Dosage: UNK
     Dates: start: 20221007
  18. WHITE PETROLATUM [Concomitant]
     Active Substance: PETROLATUM
  19. AZOSEMIDE [Concomitant]
     Active Substance: AZOSEMIDE
  20. SAMSCA [Concomitant]
     Active Substance: TOLVAPTAN

REACTIONS (2)
  - Shock [Recovered/Resolved]
  - Hypotension [Recovered/Resolved]

NARRATIVE: CASE EVENT DATE: 20221007
